FAERS Safety Report 22634811 (Version 1)
Quarter: 2023Q2

REPORT INFORMATION
  Report Type: Spontaneous
  Country: US (occurrence: None)
  Receive Date: 20230623
  Receipt Date: 20230623
  Transmission Date: 20230721
  Serious: Yes (Death)
  Sender: FDA-Public Use
  Company Number: US-ROCHE-3375219

PATIENT
  Sex: Male

DRUGS (1)
  1. PEGASYS [Suspect]
     Active Substance: PEGINTERFERON ALFA-2A
     Indication: Plasma cell myeloma
     Dosage: 180 MCG, 1 ML VIAL 180 MCG/1ML SOLUTION FOR INJECTION
     Route: 065

REACTIONS (3)
  - Death [Fatal]
  - Hospice care [Fatal]
  - Off label use [Fatal]

NARRATIVE: CASE EVENT DATE: 20230611
